FAERS Safety Report 9190071 (Version 2)
Quarter: 2013Q2

REPORT INFORMATION
  Report Type: Spontaneous
  Country: IL (occurrence: None)
  Receive Date: 20130322
  Receipt Date: 20130423
  Transmission Date: 20140414
  Serious: Yes (Other)
  Sender: FDA-Public Use
  Company Number: 2013-1095

PATIENT
  Age: 67 Year
  Sex: Male

DRUGS (8)
  1. SOMATULINE AUTOGEL [Suspect]
     Indication: ACROMEGALY
     Dosage: 120 MG (120 MG, 1 IN 28 D), SUBCUTANEOUS
     Route: 058
  2. MICROPIRIN (ACETYLSALICYLIC ACID) [Concomitant]
  3. ESOMEPRAZOLE (ESOMEPRAZOLE) [Concomitant]
  4. OLSAR [Concomitant]
  5. GLUCOPHAGE (METFORMIN) [Concomitant]
  6. CRESTOR (ROSUVASTATIN) [Concomitant]
  7. INSULIN MIXTARD (INSULIN INJECTION, ISOPHANE) [Concomitant]
  8. NEOBLOC (METOPROLOL TARTRATE) [Concomitant]

REACTIONS (3)
  - Rectal polyp [None]
  - Large intestine polyp [None]
  - Iron deficiency anaemia [None]
